FAERS Safety Report 17826277 (Version 2)
Quarter: 2020Q2

REPORT INFORMATION
  Report Type: Report from Study
  Country: US (occurrence: US)
  Receive Date: 20200526
  Receipt Date: 20200601
  Transmission Date: 20200714
  Serious: Yes (Death, Hospitalization, Other)
  Sender: FDA-Public Use
  Company Number: US-SA-2020SA112508

PATIENT

DRUGS (18)
  1. HYDROXYCHLOROQUINE [Concomitant]
     Active Substance: HYDROXYCHLOROQUINE
     Indication: CORONAVIRUS INFECTION
     Dosage: 200 MG, BID
     Route: 048
     Dates: start: 20200326, end: 20200331
  2. ASCORBIC ACID. [Concomitant]
     Active Substance: ASCORBIC ACID
     Indication: CORONAVIRUS INFECTION
     Dosage: 500 MG, QD
     Route: 048
     Dates: start: 20200330, end: 20200402
  3. FAMOTIDINE. [Concomitant]
     Active Substance: FAMOTIDINE
     Indication: CORONAVIRUS INFECTION
     Dosage: 20 MG, BID
     Route: 042
     Dates: start: 20200330
  4. ACETAMINOPHEN. [Concomitant]
     Active Substance: ACETAMINOPHEN
     Indication: PYREXIA
     Dosage: 650 MG, QD
     Route: 048
     Dates: start: 20200330, end: 20200330
  5. CEFEPIME [Concomitant]
     Active Substance: CEFEPIME HYDROCHLORIDE
     Indication: CORONAVIRUS INFECTION
  6. METHYLPREDNISOLONE SODIUM SUCCINATE. [Concomitant]
     Active Substance: METHYLPREDNISOLONE SODIUM SUCCINATE
     Indication: CORONAVIRUS INFECTION
  7. ALBUTEROL [SALBUTAMOL SULFATE] [Concomitant]
     Active Substance: ALBUTEROL SULFATE
     Indication: COVID-19
  8. SARILUMAB [Suspect]
     Active Substance: SARILUMAB
     Indication: COVID-19
     Dosage: 200 MG, SINGLE, 1X
     Route: 042
     Dates: start: 20200330, end: 20200330
  9. AZITHROMYCIN ANHYDROUS. [Concomitant]
     Active Substance: AZITHROMYCIN ANHYDROUS
     Indication: CORONAVIRUS INFECTION
  10. VANCOMYCIN [Concomitant]
     Active Substance: VANCOMYCIN
     Indication: PNEUMONIA
     Dosage: 1000 MG, BID
     Route: 042
     Dates: start: 20200408, end: 20200410
  11. AZITHROMYCIN ANHYDROUS. [Concomitant]
     Active Substance: AZITHROMYCIN ANHYDROUS
     Indication: PNEUMONIA
     Dosage: 500 MG, QD
     Route: 042
     Dates: start: 20200328, end: 20200330
  12. BENZONATATE. [Concomitant]
     Active Substance: BENZONATATE
     Indication: COUGH
     Dosage: 100 MG, PRN
     Route: 048
     Dates: start: 20200328, end: 20200330
  13. CEFEPIME [Concomitant]
     Active Substance: CEFEPIME HYDROCHLORIDE
     Indication: PNEUMONIA
     Dosage: 2000 MG, Q8H
     Route: 042
     Dates: start: 20200410, end: 20200414
  14. MEROPENEM. [Concomitant]
     Active Substance: MEROPENEM
     Indication: PNEUMONIA
     Dosage: 1000 MG, BID
     Route: 042
     Dates: start: 20200407, end: 20200410
  15. VANCOMYCIN [Concomitant]
     Active Substance: VANCOMYCIN
     Indication: CORONAVIRUS INFECTION
  16. METHYLPREDNISOLONE SODIUM SUCCINATE. [Concomitant]
     Active Substance: METHYLPREDNISOLONE SODIUM SUCCINATE
     Indication: PNEUMONIA
     Dosage: 40 MG, Q8H
     Route: 042
     Dates: start: 20200329, end: 20200411
  17. ALBUTEROL [SALBUTAMOL SULFATE] [Concomitant]
     Active Substance: ALBUTEROL SULFATE
     Indication: PNEUMONIA
     Dosage: 90 MCG PRN INHALED
     Route: 055
     Dates: start: 20200417
  18. MEROPENEM. [Concomitant]
     Active Substance: MEROPENEM
     Indication: CORONAVIRUS INFECTION

REACTIONS (3)
  - Transaminases increased [Recovered/Resolved]
  - Acute kidney injury [Not Recovered/Not Resolved]
  - Cardiac arrest [Fatal]

NARRATIVE: CASE EVENT DATE: 20200414
